FAERS Safety Report 5257936-1 (Version None)
Quarter: 2007Q1

REPORT INFORMATION
  Report Type: 
  Country: None (occurrence: None)
  Receive Date: 20070307
  Receipt Date: 20061030
  Transmission Date: 20070707
  Serious: No
  Sender: FDA-Public Use
  Company Number: US-GLAXOSMITHKLINE-A0625271A

PATIENT

DRUGS (1)
  1. REQUIP [Suspect]

REACTIONS (1)
  - DRUG INEFFECTIVE [None]
